FAERS Safety Report 25901337 (Version 1)
Quarter: 2025Q4

REPORT INFORMATION
  Report Type: Spontaneous
  Country: JP (occurrence: JP)
  Receive Date: 20251009
  Receipt Date: 20251009
  Transmission Date: 20260118
  Serious: Yes (Death, Other)
  Sender: PFIZER
  Company Number: JP-PFIZER INC-PV202500119217

PATIENT
  Age: 70 Year
  Sex: Female

DRUGS (1)
  1. METHYLPREDNISOLONE SODIUM SUCCINATE [Suspect]
     Active Substance: METHYLPREDNISOLONE SODIUM SUCCINATE
     Indication: Nephrotic syndrome
     Dosage: 500 MG, DAILY

REACTIONS (4)
  - Septic shock [Fatal]
  - Escherichia infection [Fatal]
  - Drug ineffective [Unknown]
  - Cellulitis [Unknown]
